FAERS Safety Report 4648255-2 (Version None)
Quarter: 2005Q2

REPORT INFORMATION
  Report Type: 
  Country: None (occurrence: None)
  Receive Date: 20050426
  Receipt Date: 20050413
  Transmission Date: 20051028
  Serious: Yes (Other)
  Sender: FDA-Public Use
  Company Number: 2005059842

PATIENT
  Age: 60 Year
  Sex: Female
  Weight: 72.5755 kg

DRUGS (8)
  1. BEXTRA [Suspect]
     Indication: ARTHRITIS
     Dosage: ORAL
     Route: 048
     Dates: start: 20040101
  2. BEXTRA [Suspect]
     Indication: PAIN
     Dosage: ORAL
     Route: 048
     Dates: start: 20040101
  3. BEXTRA [Suspect]
     Indication: SWELLING
     Dosage: ORAL
     Route: 048
     Dates: start: 20040101
  4. CETIRIZINE HCL [Concomitant]
  5. CONJUGATED ESTROGENS [Concomitant]
  6. ALL OTHER THERAPEUTIC PRODUCTS (ALL OTHER THERAPEUTIC PRODUCTS) [Concomitant]
  7. PANTOPRAZOLE (PANTOPRAZOLE) [Concomitant]
  8. ANTIHYPERTERTENSIVES (ANTIHYPERTENSIVES) [Concomitant]

REACTIONS (7)
  - DRUG INEFFECTIVE [None]
  - GENERALISED ERYTHEMA [None]
  - GENERALISED OEDEMA [None]
  - LOCAL SWELLING [None]
  - RASH GENERALISED [None]
  - SWELLING FACE [None]
  - URTICARIA [None]
